FAERS Safety Report 10160434 (Version 1)
Quarter: 2014Q2

REPORT INFORMATION
  Report Type: Spontaneous
  Country: US (occurrence: US)
  Receive Date: 20140508
  Receipt Date: 20140508
  Transmission Date: 20141212
  Serious: No
  Sender: FDA-Public Use
  Company Number: US-ENDO PHARMACEUTICALS INC.-OPCR20140137

PATIENT
  Sex: Male
  Weight: 106.69 kg

DRUGS (1)
  1. OPANA ER 20MG [Suspect]
     Indication: BACK PAIN
     Route: 048

REACTIONS (1)
  - Retching [Unknown]
